FAERS Safety Report 15604045 (Version 1)
Quarter: 2018Q4

REPORT INFORMATION
  Report Type: Spontaneous
  Country: US (occurrence: US)
  Receive Date: 20181109
  Receipt Date: 20181109
  Transmission Date: 20190205
  Serious: No
  Sender: FDA-Public Use
  Company Number: US-SHIRE-US201843568

PATIENT
  Age: 49 Year
  Sex: Female
  Weight: 73.47 kg

DRUGS (1)
  1. HYQVIA [Suspect]
     Active Substance: HUMAN IMMUNOGLOBULIN G\HYALURONIDASE RECOMBINANT HUMAN
     Indication: PRODUCT USED FOR UNKNOWN INDICATION
     Dosage: 20 G, 1X/2WKS
     Route: 065

REACTIONS (2)
  - Infusion site discomfort [Unknown]
  - Off label use [Unknown]
